FAERS Safety Report 6657596-9 (Version None)
Quarter: 2010Q1

REPORT INFORMATION
  Report Type: 
  Country: None (occurrence: None)
  Receive Date: 20100330
  Receipt Date: 20100322
  Transmission Date: 20100710
  Serious: Yes (Hospitalization, Other)
  Sender: FDA-Public Use
  Company Number: US-BAYER-201017243NA

PATIENT
  Age: 21 Year
  Sex: Female

DRUGS (1)
  1. MIRENA [Suspect]
     Indication: CONTRACEPTION
     Dosage: FREQUENCY CONTINUOUS
     Route: 015
     Dates: start: 20080101

REACTIONS (8)
  - AMENORRHOEA [None]
  - BREAST TENDERNESS [None]
  - CHOLELITHIASIS [None]
  - DEPRESSION [None]
  - GALLBLADDER DISORDER [None]
  - VAGINAL HAEMORRHAGE [None]
  - VOMITING [None]
  - WEIGHT INCREASED [None]
